FAERS Safety Report 7634079-0 (Version None)
Quarter: 2011Q3

REPORT INFORMATION
  Report Type: 
  Country: None (occurrence: None)
  Receive Date: 20110725
  Receipt Date: 20110714
  Transmission Date: 20111222
  Serious: Yes (Other)
  Sender: FDA-Public Use
  Company Number: GB-ASTRAZENECA-2011SE42297

PATIENT
  Age: 82 Year
  Sex: Male

DRUGS (2)
  1. TRIPTORELIN [Concomitant]
  2. CASODEX [Suspect]
     Route: 048

REACTIONS (1)
  - TUMOUR FLARE [None]
